FAERS Safety Report 24151247 (Version 1)
Quarter: 2024Q3

REPORT INFORMATION
  Report Type: Spontaneous
  Country: US (occurrence: US)
  Receive Date: 20240730
  Receipt Date: 20240730
  Transmission Date: 20241017
  Serious: No
  Sender: GLENMARK
  Company Number: US-GLENMARK PHARMACEUTICALS-2023GMK085966

PATIENT

DRUGS (1)
  1. MUPIROCIN [Suspect]
     Active Substance: MUPIROCIN
     Indication: Cellulitis
     Dosage: UNK, TID
     Route: 065
     Dates: start: 202310

REACTIONS (3)
  - Application site scab [Unknown]
  - Drug effective for unapproved indication [Unknown]
  - Application site erythema [Unknown]

NARRATIVE: CASE EVENT DATE: 20231001
